FAERS Safety Report 16766634 (Version 1)
Quarter: 2019Q3

REPORT INFORMATION
  Report Type: Spontaneous
  Country: US (occurrence: US)
  Receive Date: 20190903
  Receipt Date: 20190903
  Transmission Date: 20191005
  Serious: No
  Sender: FDA-Public Use
  Company Number: US-PFIZER INC-2019369849

PATIENT
  Sex: Male

DRUGS (1)
  1. RELPAX [Suspect]
     Active Substance: ELETRIPTAN HYDROBROMIDE
     Dosage: UNK

REACTIONS (5)
  - Hepatic function abnormal [Unknown]
  - Recalled product administered [Unknown]
  - Blood bilirubin abnormal [Unknown]
  - Gastric disorder [Unknown]
  - Gallbladder disorder [Unknown]
